FAERS Safety Report 21364497 (Version 1)
Quarter: 2022Q3

REPORT INFORMATION
  Report Type: Spontaneous
  Country: US (occurrence: US)
  Receive Date: 20220922
  Receipt Date: 20220922
  Transmission Date: 20221026
  Serious: Yes (Life-Threatening, Hospitalization, Congenital Anomaly, Other)
  Sender: FDA-Public Use
  Company Number: US-SLATE RUN PHARMACEUTICALS-22US001333

PATIENT

DRUGS (10)
  1. BUPROPION HYDROCHLORIDE [Suspect]
     Active Substance: BUPROPION HYDROCHLORIDE
     Indication: Maternal exposure during pregnancy
     Dosage: 300 MILLIGRAM, QD
  2. BACLOFEN [Suspect]
     Active Substance: BACLOFEN
     Indication: Maternal exposure during pregnancy
     Dosage: 0.125 MILLIGRAM PER KILOGRAM, QD
     Route: 048
  3. BACLOFEN [Suspect]
     Active Substance: BACLOFEN
     Indication: Drug withdrawal maintenance therapy
     Dosage: 0.125 MILLIGRAM PER KILOGRAM, Q 12 HR
     Route: 048
  4. BACLOFEN [Suspect]
     Active Substance: BACLOFEN
     Dosage: 0.125 MILLIGRAM PER KILOGRAM, Q 8 HR
     Route: 048
  5. BACLOFEN [Suspect]
     Active Substance: BACLOFEN
     Dosage: 0.125 MILLIGRAM PER KILOGRAM, Q 6 HR
     Route: 048
  6. BACLOFEN [Suspect]
     Active Substance: BACLOFEN
     Dosage: 30 MILLIGRAM, QID, MATERNAL EXPOSURE
     Route: 048
  7. DIAZEPAM [Suspect]
     Active Substance: DIAZEPAM
     Indication: Maternal exposure during pregnancy
     Dosage: 2.5 MILLIGRAM, QD, PRN
     Route: 048
  8. OXYBUTYNIN [Concomitant]
     Active Substance: OXYBUTYNIN
     Indication: Maternal exposure during pregnancy
     Dosage: 5 MILLIGRAM, QD
  9. ESCITALOPRAM [Concomitant]
     Active Substance: ESCITALOPRAM OXALATE
     Indication: Maternal exposure during pregnancy
     Dosage: 10 MILLIGRAM, QD
  10. MIDODRINE [Concomitant]
     Active Substance: MIDODRINE
     Indication: Maternal exposure during pregnancy
     Dosage: 5 MILLIGRAM, QD

REACTIONS (15)
  - Infantile apnoea [Recovering/Resolving]
  - Heart rate increased [Recovered/Resolved]
  - Premature baby [Recovered/Resolved]
  - Apgar score low [Recovered/Resolved]
  - Drug withdrawal syndrome neonatal [Recovered/Resolved]
  - Plagiocephaly [Recovering/Resolving]
  - Breech presentation [Recovered/Resolved]
  - Hypotonia neonatal [Unknown]
  - Oxygen saturation decreased [Recovering/Resolving]
  - Nasal flaring [Unknown]
  - Posturing [Recovered/Resolved]
  - Movement disorder [Unknown]
  - Torticollis [Recovering/Resolving]
  - Low birth weight baby [Unknown]
  - Foetal exposure during pregnancy [Recovered/Resolved]
